FAERS Safety Report 13675984 (Version 2)
Quarter: 2017Q3

REPORT INFORMATION
  Report Type: Spontaneous
  Country: CN (occurrence: CN)
  Receive Date: 20170622
  Receipt Date: 20170705
  Transmission Date: 20171127
  Serious: Yes (Hospitalization, Other)
  Sender: FDA-Public Use
  Company Number: CN-VIIV HEALTHCARE LIMITED-CN2017GSK093487

PATIENT
  Age: 67 Year
  Sex: Male

DRUGS (4)
  1. CAFFEIC ACID TABLETS /14210401/ [Suspect]
     Active Substance: CAFFEIC ACID
     Indication: HAEMOSTASIS
     Dosage: UNK
     Route: 048
  2. LAMIVUDINE. [Suspect]
     Active Substance: LAMIVUDINE
     Indication: HEPATIC CIRRHOSIS
     Dosage: UNK
     Route: 048
     Dates: start: 2016
  3. VIREAD [Suspect]
     Active Substance: TENOFOVIR DISOPROXIL FUMARATE
     Indication: HEPATIC CIRRHOSIS
     Dosage: 300 MG, QD
     Route: 048
  4. HEPTODIN [Suspect]
     Active Substance: LAMIVUDINE
     Indication: HEPATIC CIRRHOSIS
     Dosage: UNK
     Route: 048
     Dates: start: 2013, end: 2016

REACTIONS (8)
  - Haematuria [Not Recovered/Not Resolved]
  - Drug resistance [Unknown]
  - Product use in unapproved indication [Unknown]
  - Hepatic neoplasm [Not Recovered/Not Resolved]
  - Bladder cancer [Not Recovered/Not Resolved]
  - Gastrointestinal haemorrhage [Recovering/Resolving]
  - Pruritus generalised [Not Recovered/Not Resolved]
  - Platelet count decreased [Unknown]

NARRATIVE: CASE EVENT DATE: 201606
